FAERS Safety Report 20775767 (Version 1)
Quarter: 2022Q2

REPORT INFORMATION
  Report Type: Spontaneous
  Country: GB (occurrence: GB)
  Receive Date: 20220502
  Receipt Date: 20220502
  Transmission Date: 20220721
  Serious: Yes (Other)
  Sender: FDA-Public Use
  Company Number: None

PATIENT

DRUGS (2)
  1. WARFARIN [Suspect]
     Active Substance: WARFARIN
     Route: 065
  2. DABIGATRAN [Suspect]
     Active Substance: DABIGATRAN
     Route: 065

REACTIONS (2)
  - Arthralgia [Unknown]
  - Pain [Unknown]
